FAERS Safety Report 20797701 (Version 1)
Quarter: 2022Q2

REPORT INFORMATION
  Report Type: Spontaneous
  Country: US (occurrence: None)
  Receive Date: 20220506
  Receipt Date: 20220506
  Transmission Date: 20220721
  Serious: No
  Sender: FDA-Public Use
  Company Number: None

PATIENT
  Age: 47 Year
  Sex: Female

DRUGS (1)
  1. GILENYA [Suspect]
     Active Substance: FINGOLIMOD HYDROCHLORIDE
     Indication: Multiple sclerosis
     Dosage: FREQUENCY : DAILY;?
     Route: 048
     Dates: start: 20210831

REACTIONS (5)
  - Fatigue [None]
  - Amnesia [None]
  - Confusional state [None]
  - White blood cell count decreased [None]
  - Condition aggravated [None]

NARRATIVE: CASE EVENT DATE: 20220401
